FAERS Safety Report 19763840 (Version 1)
Quarter: 2021Q3

REPORT INFORMATION
  Report Type: Report from Study
  Country: BR (occurrence: BR)
  Receive Date: 20210830
  Receipt Date: 20210830
  Transmission Date: 20211014
  Serious: Yes (Other)
  Sender: FDA-Public Use
  Company Number: BR-TAKEDA-BR201935172

PATIENT
  Age: 6 Year
  Sex: Male
  Weight: 22 kg

DRUGS (2)
  1. HEMO?8R [Suspect]
     Active Substance: ANTIHEMOPHILIC FACTOR, HUMAN RECOMBINANT
     Indication: FACTOR VIII DEFICIENCY
     Dosage: 750 INTERNATIONAL UNIT, 1/WEEK
     Route: 042
     Dates: start: 20170712, end: 2020
  2. HEMO?8R [Suspect]
     Active Substance: ANTIHEMOPHILIC FACTOR, HUMAN RECOMBINANT
     Dosage: 1000 INTERNATIONAL UNIT, 1/WEEK
     Route: 042
     Dates: start: 2020

REACTIONS (7)
  - Weight increased [Unknown]
  - Gingival bleeding [Recovered/Resolved]
  - Inappropriate schedule of product administration [Unknown]
  - Joint injury [Recovered/Resolved]
  - Contusion [Unknown]
  - Joint swelling [Unknown]
  - Fall [Recovered/Resolved]

NARRATIVE: CASE EVENT DATE: 20191008
